FAERS Safety Report 9808102 (Version 1)
Quarter: 2014Q1

REPORT INFORMATION
  Report Type: Spontaneous
  Country: BR (occurrence: BR)
  Receive Date: 20140110
  Receipt Date: 20140110
  Transmission Date: 20141002
  Serious: Yes (Hospitalization)
  Sender: FDA-Public Use
  Company Number: BR-PFIZER INC-2014004494

PATIENT
  Age: 57 Year
  Sex: Female
  Weight: 58 kg

DRUGS (5)
  1. LYRICA [Suspect]
     Indication: PAIN
     Dosage: 1 TABLET OR CAPSULE (75 MG), DAILY
     Route: 048
     Dates: start: 20120107, end: 201203
  2. ATENOLOL [Concomitant]
     Indication: HYPERTENSION
     Dosage: 1 TABLET OR CAPSULE - FORMULATION (50 MG), DAILY
     Dates: start: 2009
  3. CHAMPIX [Concomitant]
     Indication: SMOKING CESSATION THERAPY
     Dosage: 1 TABLET OR CAPSULE - FORMULATION , DAILY
     Dates: start: 20080817
  4. EUTIROX [Concomitant]
     Indication: HYPOTHYROIDISM
     Dosage: 1 TABLET OR CAPSULE - FORMULATION (75 MG), DAILY
     Dates: start: 2004
  5. MODURETIC [Concomitant]
     Indication: HYPERTENSION
     Dosage: 1 TABLET OR CAPSULE (25 MG), DAILY
     Dates: start: 2009

REACTIONS (1)
  - Arthropathy [Unknown]
